FAERS Safety Report 11870108 (Version 1)
Quarter: 2015Q4

REPORT INFORMATION
  Report Type: Spontaneous
  Country: US (occurrence: None)
  Receive Date: 20151223
  Receipt Date: 20151223
  Transmission Date: 20160305
  Serious: No
  Sender: FDA-Public Use
  Company Number: None

PATIENT
  Age: 13 Year
  Sex: Male

DRUGS (4)
  1. HUMATROPE [Suspect]
     Active Substance: SOMATROPIN
     Indication: DWARFISM
     Route: 058
     Dates: start: 20151027
  2. AZATHIOPRINE. [Concomitant]
     Active Substance: AZATHIOPRINE
  3. MULTIVITAMIN [Concomitant]
     Active Substance: VITAMINS
  4. ALLOPURINOL. [Concomitant]
     Active Substance: ALLOPURINOL

REACTIONS (2)
  - Sensory loss [None]
  - Post procedural complication [None]

NARRATIVE: CASE EVENT DATE: 20151218
